FAERS Safety Report 19709341 (Version 1)
Quarter: 2021Q3

REPORT INFORMATION
  Report Type: Spontaneous
  Country: US (occurrence: US)
  Receive Date: 20210816
  Receipt Date: 20210816
  Transmission Date: 20211014
  Serious: Yes (Life-Threatening, Hospitalization, Other)
  Sender: FDA-Public Use
  Company Number: US-AZURITY PHARMACEUTICALS, INC.-2021AZY00078

PATIENT
  Age: 16 Year
  Sex: Female
  Weight: 44.4 kg

DRUGS (1)
  1. AMLODIPINE [Suspect]
     Active Substance: AMLODIPINE BESYLATE
     Indication: HYPERTENSION
     Route: 048

REACTIONS (4)
  - Suicide attempt [Recovered/Resolved]
  - Shock [Recovered/Resolved]
  - Acute kidney injury [Recovered/Resolved]
  - Pulseless electrical activity [Recovered/Resolved]
